FAERS Safety Report 9849624 (Version 1)
Quarter: 2014Q1

REPORT INFORMATION
  Report Type: Spontaneous
  Country: US (occurrence: US)
  Receive Date: 20140128
  Receipt Date: 20140128
  Transmission Date: 20141002
  Serious: No
  Sender: FDA-Public Use
  Company Number: US-PFIZER INC-2014023752

PATIENT
  Age: 27 Year
  Sex: Male
  Weight: 112.02 kg

DRUGS (1)
  1. LYRICA [Suspect]
     Indication: NEURALGIA
     Dosage: 200 MG, 3X/DAY
     Route: 048
     Dates: start: 2013, end: 20140123

REACTIONS (5)
  - Off label use [Unknown]
  - Weight decreased [Unknown]
  - Visual impairment [Unknown]
  - Abnormal behaviour [Unknown]
  - Therapeutic response unexpected [Unknown]
